FAERS Safety Report 4551056-7 (Version None)
Quarter: 2005Q1

REPORT INFORMATION
  Report Type: 
  Country: None (occurrence: None)
  Receive Date: 20050113
  Receipt Date: 20041117
  Transmission Date: 20050727
  Serious: No
  Sender: FDA-Public Use
  Company Number: US-BRISTOL-MYERS SQUIBB COMPANY-12768446

PATIENT
  Age: 40 Year
  Sex: Female

DRUGS (4)
  1. TRAZODONE HCL [Suspect]
     Dosage: AT BEDTIME; STARTED THERAPY ^ONE MONTH AGO^
     Route: 048
  2. WELLBUTRIN [Concomitant]
  3. ABILIFY [Concomitant]
  4. PERCOCET [Concomitant]

REACTIONS (1)
  - BLOOD URINE [None]
